FAERS Safety Report 5801359-0 (Version None)
Quarter: 2008Q3

REPORT INFORMATION
  Report Type: 
  Country: None (occurrence: None)
  Receive Date: 20080707
  Receipt Date: 20080624
  Transmission Date: 20090109
  Serious: Yes (Other)
  Sender: FDA-Public Use
  Company Number: TR-NOVOPROD-275536

PATIENT
  Age: 45 Year
  Sex: Male
  Weight: 78 kg

DRUGS (2)
  1. NOVORAPID [Suspect]
     Indication: TYPE 1 DIABETES MELLITUS
     Dosage: UNK, TID
  2. INSULATARD HM PENFILL [Suspect]
     Indication: TYPE 1 DIABETES MELLITUS
     Dosage: UNK, QD

REACTIONS (5)
  - ANTI-INSULIN ANTIBODY [None]
  - DIABETES MELLITUS INADEQUATE CONTROL [None]
  - FATIGUE [None]
  - HEPATIC STEATOSIS [None]
  - INSULIN RESISTANCE [None]
